FAERS Safety Report 17575696 (Version 1)
Quarter: 2020Q1

REPORT INFORMATION
  Report Type: Spontaneous
  Country: US (occurrence: US)
  Receive Date: 20200324
  Receipt Date: 20200324
  Transmission Date: 20200409
  Serious: Yes (Disabling)
  Sender: FDA-Public Use
  Company Number: US-SA-2020SA072695

PATIENT

DRUGS (1)
  1. DUPIXENT [Suspect]
     Active Substance: DUPILUMAB
     Indication: ECZEMA

REACTIONS (6)
  - Depressed mood [Unknown]
  - Eczema [Unknown]
  - Stress [Unknown]
  - Crying [Unknown]
  - Feeling of despair [Unknown]
  - Loss of personal independence in daily activities [Unknown]
